FAERS Safety Report 7512050-7 (Version None)
Quarter: 2011Q2

REPORT INFORMATION
  Report Type: 
  Country: None (occurrence: None)
  Receive Date: 20110531
  Receipt Date: 20110510
  Transmission Date: 20111010
  Serious: Yes (Hospitalization, Other)
  Sender: FDA-Public Use
  Company Number: US-BAYER-2011-002413

PATIENT
  Age: 23 Year
  Sex: Female
  Weight: 57.596 kg

DRUGS (5)
  1. YAZ [Suspect]
     Indication: PRODUCT USED FOR UNKNOWN INDICATION
     Dosage: UNK
     Route: 048
     Dates: start: 20060501, end: 20090126
  2. FEMCON FE [Concomitant]
     Dosage: 35 ?G - 0.4 MG, UNK
     Route: 048
     Dates: end: 20090126
  3. YASMIN [Suspect]
     Dosage: UNK
     Dates: start: 20060501, end: 20090126
  4. YASMIN [Suspect]
     Indication: PRODUCT USED FOR UNKNOWN INDICATION
     Dosage: UNK
     Route: 048
     Dates: start: 20060501, end: 20090126
  5. YAZ [Suspect]
     Dosage: UNK
     Dates: start: 20060501, end: 20090126

REACTIONS (3)
  - PAIN [None]
  - FEAR [None]
  - PULMONARY EMBOLISM [None]
